FAERS Safety Report 10261951 (Version 1)
Quarter: 2014Q2

REPORT INFORMATION
  Report Type: Spontaneous
  Country: PH (occurrence: PH)
  Receive Date: 20140626
  Receipt Date: 20140626
  Transmission Date: 20141212
  Serious: Yes (Hospitalization)
  Sender: FDA-Public Use
  Company Number: PH-009507513-1406PHL011419

PATIENT
  Age: 44 Year
  Sex: Male

DRUGS (4)
  1. JANUMET [Suspect]
     Indication: DIABETES MELLITUS
     Dosage: 1 DF, TWICE A DAY
     Route: 048
     Dates: start: 20140602, end: 201406
  2. METFORMIN [Concomitant]
  3. DIAMICRON [Concomitant]
  4. INSULIN [Concomitant]

REACTIONS (3)
  - Loss of libido [Recovering/Resolving]
  - Depression [Recovering/Resolving]
  - Decreased appetite [Recovering/Resolving]
